FAERS Safety Report 7818911-3 (Version None)
Quarter: 2011Q4

REPORT INFORMATION
  Report Type: 
  Country: None (occurrence: None)
  Receive Date: 20111017
  Receipt Date: 20111017
  Transmission Date: 20120403
  Serious: No
  Sender: FDA-Public Use
  Company Number: None

PATIENT
  Sex: Male
  Weight: 77.2 kg

DRUGS (2)
  1. TARCEVA [Suspect]
     Dosage: 1500 MG
  2. GEMCITABINE HYDROCHLORIDE [Suspect]
     Dosage: 5200 MG

REACTIONS (5)
  - FATIGUE [None]
  - BLOOD AMYLASE INCREASED [None]
  - PYREXIA [None]
  - RASH [None]
  - HYPOPHOSPHATAEMIA [None]
